FAERS Safety Report 25863773 (Version 1)
Quarter: 2025Q3

REPORT INFORMATION
  Report Type: Spontaneous
  Country: RU (occurrence: RU)
  Receive Date: 20250930
  Receipt Date: 20250930
  Transmission Date: 20251021
  Serious: Yes (Life-Threatening, Hospitalization, Disabling)
  Sender: ACCORD
  Company Number: RU-MLMSERVICE-20250910-PI642332-00057-1

PATIENT
  Age: 83 Year
  Sex: Female

DRUGS (15)
  1. ATORVASTATIN [Suspect]
     Active Substance: ATORVASTATIN
     Indication: Type V hyperlipidaemia
     Dosage: ALTERNATED MODERATE DOSES
     Dates: start: 202112, end: 202404
  2. ROSUVASTATIN CALCIUM [Suspect]
     Active Substance: ROSUVASTATIN CALCIUM
     Indication: Type V hyperlipidaemia
     Dates: end: 2024
  3. ASPIRIN [Concomitant]
     Active Substance: ASPIRIN
     Indication: Antiplatelet therapy
     Dates: start: 202112
  4. BISOPROLOL [Concomitant]
     Active Substance: BISOPROLOL
     Dates: start: 202403
  5. CYANOCOBALAMIN [Concomitant]
     Active Substance: CYANOCOBALAMIN
     Indication: Vitamin B12 decreased
     Route: 048
  6. INDAPAMIDE [Concomitant]
     Active Substance: INDAPAMIDE
     Dates: start: 202112
  7. IRON [Concomitant]
     Active Substance: IRON
     Indication: Blood iron increased
     Route: 048
  8. MESALAMINE [Concomitant]
     Active Substance: MESALAMINE
     Indication: Gastritis
     Dates: start: 2021
  9. PERINDOPRIL [Concomitant]
     Active Substance: PERINDOPRIL
     Dates: start: 202112
  10. SPIRONOLACTONE [Concomitant]
     Active Substance: SPIRONOLACTONE
     Dates: start: 202403
  11. TICAGRELOR [Concomitant]
     Active Substance: TICAGRELOR
     Indication: Antiplatelet therapy
     Dates: start: 202112
  12. ROSUVASTATIN CALCIUM [Suspect]
     Active Substance: ROSUVASTATIN CALCIUM
     Indication: Type V hyperlipidaemia
     Dosage: MODERATE DOSES. INCREASING THE INTENSITY OF LIPID-LOWERING THERAPY (ROSUVASTATIN 40 MG/DAY)
     Dates: start: 2024, end: 202404
  13. MESALAMINE [Concomitant]
     Active Substance: MESALAMINE
     Indication: Colitis ulcerative
     Dates: start: 2021
  14. MESALAMINE [Concomitant]
     Active Substance: MESALAMINE
     Indication: Colitis ulcerative
     Dates: start: 2021
  15. MESALAMINE [Concomitant]
     Active Substance: MESALAMINE
     Indication: Gastritis
     Dates: start: 2021

REACTIONS (5)
  - Rhabdomyolysis [Recovered/Resolved]
  - Acute kidney injury [Recovered/Resolved]
  - Drug-induced liver injury [Recovered/Resolved]
  - Hypoproteinaemia [Recovered/Resolved]
  - Hypoalbuminaemia [Recovered/Resolved]

NARRATIVE: CASE EVENT DATE: 20240401
